FAERS Safety Report 4843024-2 (Version None)
Quarter: 2005Q4

REPORT INFORMATION
  Report Type: 
  Country: None (occurrence: None)
  Receive Date: 20051201
  Receipt Date: 20051122
  Transmission Date: 20060501
  Serious: Yes (Other)
  Sender: FDA-Public Use
  Company Number: US-ROCHE-426319

PATIENT
  Age: 54 Year
  Sex: Female

DRUGS (2)
  1. BONIVA [Suspect]
     Indication: OSTEOPENIA
     Route: 048
     Dates: start: 20051015
  2. AMITRIPTYLINE HCL [Concomitant]
     Indication: HEADACHE
     Route: 048

REACTIONS (1)
  - TEMPOROMANDIBULAR JOINT SYNDROME [None]
